FAERS Safety Report 4491874-7 (Version None)
Quarter: 2004Q4

REPORT INFORMATION
  Report Type: 
  Country: None (occurrence: None)
  Receive Date: 20041028
  Receipt Date: 20041028
  Transmission Date: 20050328
  Serious: No
  Sender: FDA-Public Use
  Company Number: None

PATIENT
  Age: 80 Year
  Sex: Male
  Weight: 81.6475 kg

DRUGS (7)
  1. IRON DEXTRAN [Suspect]
     Indication: ANAEMIA
     Dosage: 25MG   X1 LAST DOSE   INTRAVENOU
     Route: 042
     Dates: start: 20041020, end: 20041020
  2. LEVAQUIN [Concomitant]
  3. XOPENEX [Concomitant]
  4. ATROVENT [Concomitant]
  5. TYLENOL [Concomitant]
  6. FUROSEMIDE [Concomitant]
  7. PRINIVIL [Concomitant]

REACTIONS (3)
  - BRONCHOSPASM [None]
  - DIZZINESS [None]
  - DYSPNOEA [None]
